FAERS Safety Report 4905014-0 (Version None)
Quarter: 2006Q1

REPORT INFORMATION
  Report Type: 
  Country: None (occurrence: None)
  Receive Date: 20060208
  Receipt Date: 20051103
  Transmission Date: 20060701
  Serious: No
  Sender: FDA-Public Use
  Company Number: US-GLAXOSMITHKLINE-A0580864A

PATIENT
  Sex: Female

DRUGS (2)
  1. PAXIL [Suspect]
     Indication: ANXIETY
     Route: 048
  2. UNKNOWN MEDICATION [Concomitant]
     Indication: ANXIETY

REACTIONS (2)
  - HYPERVIGILANCE [None]
  - PARAESTHESIA [None]
